FAERS Safety Report 6046411-2 (Version None)
Quarter: 2009Q1

REPORT INFORMATION
  Report Type: 
  Country: None (occurrence: None)
  Receive Date: 20090121
  Receipt Date: 20090121
  Transmission Date: 20090719
  Serious: Yes (Hospitalization)
  Sender: FDA-Public Use
  Company Number: None

PATIENT
  Age: 53 Year

DRUGS (2)
  1. CEFTRIAXONE AND DEXTROSE IN DUPLEX CONTAINER [Suspect]
     Indication: ENDOCARDITIS
     Dates: start: 20081119, end: 20081125
  2. GENTAMICIN [Suspect]
     Dates: start: 20081120, end: 20081201

REACTIONS (11)
  - BLOOD CREATININE INCREASED [None]
  - BLOOD UREA INCREASED [None]
  - DRUG ERUPTION [None]
  - FUNGAL SKIN INFECTION [None]
  - HEPATIC FUNCTION ABNORMAL [None]
  - PRURITUS [None]
  - RASH [None]
  - RENAL FAILURE ACUTE [None]
  - RENAL TUBULAR NECROSIS [None]
  - SKIN EXFOLIATION [None]
  - URTICARIA [None]
